FAERS Safety Report 17801926 (Version 2)
Quarter: 2020Q4

REPORT INFORMATION
  Report Type: Report from Study
  Country: US (occurrence: US)
  Receive Date: 20200519
  Receipt Date: 20201124
  Transmission Date: 20210113
  Serious: Yes (Hospitalization)
  Sender: FDA-Public Use
  Company Number: US-SA-2020SA129156

PATIENT

DRUGS (2)
  1. LARONIDASE [Suspect]
     Active Substance: LARONIDASE
     Dosage: 11.6 MG, QOW
     Route: 041
  2. LARONIDASE [Suspect]
     Active Substance: LARONIDASE
     Indication: MUCOPOLYSACCHARIDOSIS I
     Dosage: 12 MG, QW
     Route: 041
     Dates: start: 2014, end: 2020

REACTIONS (3)
  - Off label use [Unknown]
  - Hospitalisation [Unknown]
  - Illness [Unknown]
